FAERS Safety Report 5005004-6 (Version None)
Quarter: 2006Q1

REPORT INFORMATION
  Report Type: 
  Country: None (occurrence: None)
  Receive Date: 20060327
  Receipt Date: 20050421
  Transmission Date: 20060701
  Serious: Yes (Other)
  Sender: FDA-Public Use
  Company Number: 17987

PATIENT
  Age: 6 Year
  Sex: Male

DRUGS (1)
  1. KETAMINE HCI INJ. USP 500MG/10ML [Suspect]
     Indication: SEDATION
     Dates: start: 20050416, end: 20050417

REACTIONS (1)
  - DRUG INEFFECTIVE [None]
